FAERS Safety Report 10031548 (Version 1)
Quarter: 2014Q1

REPORT INFORMATION
  Report Type: Spontaneous
  Country: EG (occurrence: EG)
  Receive Date: 20140324
  Receipt Date: 20140324
  Transmission Date: 20141002
  Serious: Yes (Life-Threatening, Other)
  Sender: FDA-Public Use
  Company Number: EG-ROCHE-1363476

PATIENT
  Age: 43 Year
  Sex: Female
  Weight: 80 kg

DRUGS (3)
  1. HERVIVE [Suspect]
     Indication: BREAST CANCER METASTATIC
     Route: 041
     Dates: start: 20140226
  2. ENDOXAN [Concomitant]
     Route: 048
     Dates: start: 20140225
  3. EPIRUBICIN [Concomitant]
     Indication: BREAST CANCER METASTATIC
     Dosage: DAY 1 AND 8
     Route: 042
     Dates: start: 20140225

REACTIONS (7)
  - Convulsion [Unknown]
  - Tremor [Recovered/Resolved]
  - Chest pain [Recovered/Resolved]
  - Pyrexia [Recovered/Resolved]
  - Pruritus [Recovered/Resolved]
  - Cough [Recovered/Resolved]
  - Bone pain [Recovered/Resolved]
